FAERS Safety Report 6673152-0 (Version None)
Quarter: 2010Q2

REPORT INFORMATION
  Report Type: 
  Country: None (occurrence: None)
  Receive Date: 20100408
  Receipt Date: 20100330
  Transmission Date: 20101027
  Serious: Yes (Hospitalization)
  Sender: FDA-Public Use
  Company Number: US-PFIZER INC-2010040595

PATIENT
  Age: 52 Year
  Sex: Female
  Weight: 89.7 kg

DRUGS (1)
  1. SUNITINIB MALATE [Suspect]
     Indication: HAEMANGIOPERICYTOMA
     Dosage: 50 MG, 1X/DAY FOR WEEKS 1-4, THEN 2 WEEKS REST
     Route: 048
     Dates: start: 20100112, end: 20100208

REACTIONS (1)
  - GASTRIC ULCER [None]
